FAERS Safety Report 12924063 (Version 4)
Quarter: 2016Q4

REPORT INFORMATION
  Report Type: Spontaneous
  Country: JP (occurrence: JP)
  Receive Date: 20161109
  Receipt Date: 20161227
  Transmission Date: 20170207
  Serious: Yes (Hospitalization, Other)
  Sender: FDA-Public Use
  Company Number: JP-PFIZER INC-2016511374

PATIENT
  Age: 66 Year
  Sex: Male
  Weight: 68 kg

DRUGS (4)
  1. GEMCITABINE 200MG HOSPIRA [Suspect]
     Active Substance: GEMCITABINE HYDROCHLORIDE
     Dosage: 1.2 G, 1X/DAY
     Route: 041
     Dates: start: 20161011, end: 20161011
  2. CISPLATIN. [Concomitant]
     Active Substance: CISPLATIN
     Indication: TRANSITIONAL CELL CANCER OF THE RENAL PELVIS AND URETER
     Dosage: 100 MG, 1X/DAY
     Route: 041
     Dates: start: 20161005, end: 20161005
  3. GEMCITABINE 200MG HOSPIRA [Suspect]
     Active Substance: GEMCITABINE HYDROCHLORIDE
     Dosage: 1.2 G, 1X/DAY
     Route: 041
     Dates: start: 20161101, end: 20161101
  4. GEMCITABINE 200MG HOSPIRA [Suspect]
     Active Substance: GEMCITABINE HYDROCHLORIDE
     Indication: TRANSITIONAL CELL CANCER OF THE RENAL PELVIS AND URETER
     Dosage: 1.2 G, 1X/DAY
     Route: 041
     Dates: start: 20161004, end: 20161004

REACTIONS (3)
  - Tremor [Recovering/Resolving]
  - Head titubation [Recovering/Resolving]
  - Neutrophil count decreased [Recovering/Resolving]

NARRATIVE: CASE EVENT DATE: 20161018
